FAERS Safety Report 6130634-8 (Version None)
Quarter: 2009Q1

REPORT INFORMATION
  Report Type: 
  Country: None (occurrence: None)
  Receive Date: 20090325
  Receipt Date: 20090316
  Transmission Date: 20090719
  Serious: Yes (Death, Other)
  Sender: FDA-Public Use
  Company Number: TW-TEVA-188074ISR

PATIENT
  Age: 50 Year
  Sex: Male

DRUGS (2)
  1. METHOTREXATE [Suspect]
     Dosage: 7.5-22.5MG/WEEK
     Dates: start: 19980101
  2. METHOTREXATE [Suspect]
     Dosage: 2.5-10MG/WEEK

REACTIONS (1)
  - DIFFUSE LARGE B-CELL LYMPHOMA [None]
